FAERS Safety Report 16803773 (Version 10)
Quarter: 2020Q1

REPORT INFORMATION
  Report Type: Spontaneous
  Country: CA (occurrence: CA)
  Receive Date: 20190913
  Receipt Date: 20200128
  Transmission Date: 20200409
  Serious: Yes (Hospitalization, Other)
  Sender: FDA-Public Use
  Company Number: CA-ORION CORPORATION ORION PHARMA-TREX2019-3241

PATIENT
  Age: 79 Year
  Sex: Female
  Weight: 74 kg

DRUGS (24)
  1. TYLENOL ARTHRITIS PAIN [Concomitant]
     Active Substance: ACETAMINOPHEN
     Indication: PAIN
     Dosage: 2 TABLETS
     Route: 048
  2. FLOVENT HFA [Concomitant]
     Active Substance: FLUTICASONE PROPIONATE
     Dosage: 2 INHALATION
     Route: 055
  3. SANDOZ FLUOROMETHOLONE [Concomitant]
     Active Substance: FLUOROMETHOLONE
     Dosage: 0.1 PERCENT
     Route: 061
  4. APO-ATORVASTATIN [Concomitant]
     Active Substance: ATORVASTATIN
     Indication: BLOOD CHOLESTEROL INCREASED
     Route: 048
  5. SANDOZ PANTOPRAZOL [Concomitant]
     Indication: GASTRIC PH DECREASED
     Dosage: AM  (IN THE MORNING)
     Route: 048
  6. SYNTHROID [Concomitant]
     Active Substance: LEVOTHYROXINE SODIUM
     Indication: THYROID DISORDER
     Dosage: AM IN THE MORNING
     Route: 048
  7. APO-NADOL [Concomitant]
     Active Substance: NADOLOL
     Indication: BLOOD PRESSURE MEASUREMENT
  8. PMS-NYSTATIN [Concomitant]
     Dosage: TAKE 5 ML, SWISH AND SPLIT
     Route: 048
  9. METHOTREXATE (TRADE NAME UNKNOWN) [Suspect]
     Active Substance: METHOTREXATE
     Route: 065
     Dates: start: 20191219
  10. MINERAL OIL. [Concomitant]
     Active Substance: MINERAL OIL
     Dosage: APPLY TO EYES HS (AT BED TIME)
     Route: 061
  11. JAMP VITAMIN D [Concomitant]
     Dosage: 2 TABLET
     Route: 048
  12. APO-FLECAINIDE [Concomitant]
     Indication: ARRHYTHMIA
     Route: 048
  13. ERYTHROMYCIN. [Concomitant]
     Active Substance: ERYTHROMYCIN
     Dosage: 0.5 PERCENT APPLY TO EYE QID FOR 7 DAYS
     Route: 061
  14. METHOTREXATE (TRADE NAME UNKNOWN) [Suspect]
     Active Substance: METHOTREXATE
     Indication: PRODUCT USED FOR UNKNOWN INDICATION
     Route: 065
     Dates: start: 2019
  15. VENTOLIN HFA [Concomitant]
     Active Substance: ALBUTEROL SULFATE
     Route: 055
  16. SANDOZ-FOLIC ACID [Concomitant]
     Dosage: TWICE WEEKLY; NOT ON MTX DAY
     Route: 048
  17. ANTIBIOTICS [Concomitant]
     Active Substance: UNSPECIFIED INGREDIENT
     Indication: EYE INFECTION
     Route: 065
     Dates: start: 201909, end: 201909
  18. OCUFLOX [Concomitant]
     Active Substance: OFLOXACIN
     Dosage: 0.3 PERCENT , 1 DROP QID EVERY 4 TO 6 HOURS FOR 7 DAYS.
     Route: 061
  19. AURO RAMIPRIL [Concomitant]
     Indication: ANGINA PECTORIS
     Dosage: AT BEDTIME
     Route: 048
  20. XARELTO [Concomitant]
     Active Substance: RIVAROXABAN
     Indication: ANTICOAGULANT THERAPY
     Route: 048
  21. JAMP CALCIUM [Concomitant]
     Route: 048
  22. APO-NADOL [Concomitant]
     Active Substance: NADOLOL
     Indication: CARDIAC FAILURE
     Route: 048
  23. INFLECTRA [Concomitant]
     Active Substance: INFLIXIMAB-DYYB
     Indication: RHEUMATOID ARTHRITIS
     Dosage: 5 MG/KG OR 400 MG Q (EVERY) 0, 2, 6 WEEKS, THEN EVERY 8 WEEKS
     Route: 042
  24. REFRESH CELLUVISC [Concomitant]
     Active Substance: CARBOXYMETHYLCELLULOSE SODIUM
     Dosage: 1 PERCENT DROP LEFT EYE
     Route: 061

REACTIONS (11)
  - Influenza [Unknown]
  - Neck pain [Unknown]
  - Rheumatoid arthritis [Unknown]
  - Keratitis [Recovering/Resolving]
  - Pneumonia [Recovering/Resolving]
  - Asthenia [Unknown]
  - Loss of personal independence in daily activities [Unknown]
  - Drug ineffective [Unknown]
  - Impaired healing [Recovering/Resolving]
  - Eye infection [Unknown]
  - Wound dehiscence [Recovering/Resolving]

NARRATIVE: CASE EVENT DATE: 2019
